FAERS Safety Report 11545409 (Version 1)
Quarter: 2015Q3

REPORT INFORMATION
  Report Type: Spontaneous
  Country: NO (occurrence: NO)
  Receive Date: 20150924
  Receipt Date: 20150924
  Transmission Date: 20151125
  Serious: Yes (Other)
  Sender: FDA-Public Use
  Company Number: NO-RB PHARMACEUTICALS LIMITED-INDV-083305-2015

PATIENT
  Sex: Male

DRUGS (1)
  1. SUBUTEX [Suspect]
     Active Substance: BUPRENORPHINE HYDROCHLORIDE
     Indication: DRUG DEPENDENCE
     Dosage: UNK
     Route: 065

REACTIONS (6)
  - Intentional overdose [Unknown]
  - Substance abuse [Unknown]
  - Drug withdrawal syndrome [Unknown]
  - Drug dependence [Unknown]
  - Suicide attempt [Unknown]
  - Crime [Unknown]
